FAERS Safety Report 16462467 (Version 1)
Quarter: 2019Q2

REPORT INFORMATION
  Report Type: Spontaneous
  Country: JP (occurrence: JP)
  Receive Date: 20190621
  Receipt Date: 20190621
  Transmission Date: 20190711
  Serious: Yes (Other)
  Sender: FDA-Public Use
  Company Number: JP-AUROBINDO-AUR-APL-2019-035580

PATIENT

DRUGS (1)
  1. PRALATREXATE INJECTION [Suspect]
     Active Substance: PRALATREXATE
     Indication: PERIPHERAL T-CELL LYMPHOMA UNSPECIFIED RECURRENT
     Dosage: UNK
     Route: 042
     Dates: start: 201806

REACTIONS (3)
  - Pneumonia [Unknown]
  - Tonsillitis [Unknown]
  - Stomatitis [Unknown]
